FAERS Safety Report 11936283 (Version 3)
Quarter: 2016Q2

REPORT INFORMATION
  Report Type: Spontaneous
  Country: US (occurrence: US)
  Receive Date: 20160121
  Receipt Date: 20160502
  Transmission Date: 20160815
  Serious: No
  Sender: FDA-Public Use
  Company Number: US-GLAXOSMITHKLINE-US2016006941

PATIENT
  Sex: Female

DRUGS (3)
  1. CARVEDILOL TABLET [Suspect]
     Active Substance: CARVEDILOL
     Dosage: 20 MG, BID
     Route: 048
  2. LISINOPRIL. [Concomitant]
     Active Substance: LISINOPRIL
  3. CARVEDILOL TABLET [Suspect]
     Active Substance: CARVEDILOL
     Indication: CARDIAC FAILURE CONGESTIVE
     Dosage: 25 MG, 1D
     Route: 048
     Dates: start: 2013

REACTIONS (3)
  - Hypertension [Recovering/Resolving]
  - Cardiomegaly [Unknown]
  - Blood pressure increased [Recovered/Resolved]

NARRATIVE: CASE EVENT DATE: 2013
